FAERS Safety Report 19033352 (Version 1)
Quarter: 2021Q1

REPORT INFORMATION
  Report Type: Spontaneous
  Country: CN (occurrence: CN)
  Receive Date: 20210320
  Receipt Date: 20210320
  Transmission Date: 20210420
  Serious: Yes (Other)
  Sender: FDA-Public Use
  Company Number: CN-ROCHE-2790505

PATIENT
  Age: 60 Year
  Sex: Male

DRUGS (10)
  1. DOXORUBICIN [Concomitant]
     Active Substance: DOXORUBICIN
     Dates: start: 201912
  2. MABTHERA [Suspect]
     Active Substance: RITUXIMAB
     Route: 065
     Dates: start: 201912
  3. MABTHERA [Suspect]
     Active Substance: RITUXIMAB
     Indication: DIFFUSE LARGE B-CELL LYMPHOMA
     Route: 065
     Dates: start: 201908, end: 201911
  4. VINCRISTINE [Concomitant]
     Active Substance: VINCRISTINE
     Indication: DIFFUSE LARGE B-CELL LYMPHOMA
     Dates: start: 201908, end: 201911
  5. PREDNISONE. [Concomitant]
     Active Substance: PREDNISONE
     Dates: start: 201912
  6. DOXORUBICIN [Concomitant]
     Active Substance: DOXORUBICIN
     Indication: DIFFUSE LARGE B-CELL LYMPHOMA
     Dates: start: 201908, end: 201911
  7. VINCRISTINE [Concomitant]
     Active Substance: VINCRISTINE
     Dates: start: 201912
  8. CYCLOPHOSPHAMIDE. [Concomitant]
     Active Substance: CYCLOPHOSPHAMIDE
     Indication: DIFFUSE LARGE B-CELL LYMPHOMA
     Dates: start: 201908, end: 201911
  9. CYCLOPHOSPHAMIDE. [Concomitant]
     Active Substance: CYCLOPHOSPHAMIDE
     Dates: start: 201912
  10. PREDNISONE. [Concomitant]
     Active Substance: PREDNISONE
     Indication: DIFFUSE LARGE B-CELL LYMPHOMA
     Dates: start: 201908, end: 201911

REACTIONS (2)
  - Gastric haemorrhage [Recovering/Resolving]
  - Helicobacter infection [Unknown]
